FAERS Safety Report 11633045 (Version 1)
Quarter: 2015Q4

REPORT INFORMATION
  Report Type: Spontaneous
  Country: US (occurrence: None)
  Receive Date: 20151014
  Receipt Date: 20151014
  Transmission Date: 20160304
  Serious: Yes (Other)
  Sender: FDA-Public Use
  Company Number: None

PATIENT
  Age: 66 Year
  Sex: Female
  Weight: 53.52 kg

DRUGS (6)
  1. ALKA-SELTZER PLUS SEVERE SINUS CONGESTION AND COUGH DAY AND NIGHT [Suspect]
     Active Substance: ACETAMINOPHEN\DEXTROMETHORPHAN HYDROBROMIDE\DOXYLAMINE SUCCINATE\PHENYLEPHRINE
     Indication: SINUS HEADACHE
     Dosage: OTC
     Dates: start: 20151013
  2. VITAMIN D [Concomitant]
     Active Substance: CHOLECALCIFEROL
  3. PLAQUENIL [Concomitant]
     Active Substance: HYDROXYCHLOROQUINE SULFATE
  4. ESTROGEN [Concomitant]
     Active Substance: ESTRONE\SUS SCROFA OVARY
  5. VITAMIN C [Concomitant]
     Active Substance: ASCORBIC ACID
  6. DHEA [Concomitant]
     Active Substance: PRASTERONE

REACTIONS (1)
  - Product packaging confusion [None]
